FAERS Safety Report 8218517 (Version 6)
Quarter: 2015Q2

REPORT INFORMATION
  Report Type: Spontaneous
  Country: US (occurrence: US)
  Receive Date: 20111101
  Receipt Date: 20150514
  Transmission Date: 20150821
  Serious: Yes (Life-Threatening, Hospitalization, Congenital Anomaly, Other)
  Sender: FDA-Public Use
  Company Number: US-ELI_LILLY_AND_COMPANY-US201110005351

PATIENT
  Age: 0 Year

DRUGS (5)
  1. AUGMENTIN [Concomitant]
     Active Substance: AMOXICILLIN\CLAVULANATE POTASSIUM
     Indication: PRODUCT USED FOR UNKNOWN INDICATION
     Dosage: 1 DF, BID
     Route: 064
  2. PROZAC [Suspect]
     Active Substance: FLUOXETINE HYDROCHLORIDE
     Indication: DEPRESSION
     Dosage: 30 MG, QD
     Route: 064
  3. PULMICORT TURBUHALER [Concomitant]
     Active Substance: BUDESONIDE
     Indication: PRODUCT USED FOR UNKNOWN INDICATION
     Dosage: 1 DF, BID
     Route: 064
  4. MAXAIR [Concomitant]
     Active Substance: PIRBUTEROL ACETATE
     Indication: PRODUCT USED FOR UNKNOWN INDICATION
     Dosage: 1 DF, UNKNOWN
     Route: 064
  5. PROZAC [Suspect]
     Active Substance: FLUOXETINE HYDROCHLORIDE
     Dosage: 20 MG, QD

REACTIONS (25)
  - Hypoplastic right heart syndrome [Not Recovered/Not Resolved]
  - Patent ductus arteriosus [Unknown]
  - Cardiac murmur [Unknown]
  - Foetal exposure during pregnancy [Recovered/Resolved]
  - Transposition of the great vessels [Unknown]
  - Cryptorchism [Unknown]
  - Atrioventricular dissociation [Unknown]
  - Large for dates baby [Unknown]
  - Gastrooesophageal reflux disease [Unknown]
  - Cerebral palsy [Not Recovered/Not Resolved]
  - Nodal rhythm [Unknown]
  - Univentricular heart [Unknown]
  - Atrioventricular block [Unknown]
  - Congenital cardiovascular anomaly [Unknown]
  - Aorta hypoplasia [Unknown]
  - Developmental delay [Unknown]
  - Ventricular septal defect [Unknown]
  - Cerebrovascular accident [Recovered/Resolved with Sequelae]
  - Sinus node dysfunction [Unknown]
  - Coarctation of the aorta [Unknown]
  - Nasal septum deviation [Unknown]
  - Right ventricular hypertrophy [Unknown]
  - Oral candidiasis [Unknown]
  - Hypochloraemia [Unknown]
  - Atrial septal defect [Unknown]

NARRATIVE: CASE EVENT DATE: 200111
